FAERS Safety Report 4998406-5 (Version None)
Quarter: 2006Q2

REPORT INFORMATION
  Report Type: 
  Country: None (occurrence: None)
  Receive Date: 20060508
  Receipt Date: 20060428
  Transmission Date: 20061013
  Serious: Yes (Hospitalization, Other)
  Sender: FDA-Public Use
  Company Number: 2006049340

PATIENT
  Age: 57 Year
  Sex: Male
  Weight: 52 kg

DRUGS (14)
  1. NORPACE CAPSULES (DISOPYRAMIDE PHOSPHATE) [Suspect]
     Indication: ILL-DEFINED DISORDER
     Dosage: 100 MG (100 MG, QD), ORAL
     Route: 048
     Dates: start: 20051121, end: 20060330
  2. CLARITHROMYCIN [Suspect]
     Indication: PNEUMONIA
     Dosage: 400 MG (200 MG, BID), ORAL
     Route: 048
     Dates: start: 20060321, end: 20060330
  3. RANITIDINE HYDROCHLORIDE [Suspect]
     Indication: ULCER HAEMORRHAGE
     Dosage: 300 MG (150 MG, BID), ORAL
     Route: 048
     Dates: start: 20060328, end: 20060329
  4. ZANTAC [Suspect]
     Indication: ULCER HAEMORRHAGE
     Dosage: 50 MG (50 MG, QD), INTRAVENOUS
     Route: 042
     Dates: start: 20060330, end: 20060330
  5. WARFARIN SODIUM [Concomitant]
  6. D ALFA (ALFACALCIDOL) [Concomitant]
  7. CALTAN (CALCIUM CARBONATE) [Concomitant]
  8. GLYCLAMIN (SODIUM GUALENATE) [Concomitant]
  9. SEVEN EP (ENZYMES NOS) [Concomitant]
  10. MUCOSTA (REBAMIPIDE) [Concomitant]
  11. RENAGEL [Concomitant]
  12. ALOSENN (ACHILLEA, RUBIA ROOT TINCTURE, SENNA FRUIT, SENNA LEAF, TARAX [Concomitant]
  13. PURSENNID (SENNA LEAF) [Concomitant]
  14. COUGHTIMY (BROMHEXINE HYDROCHLORIDE) [Concomitant]

REACTIONS (19)
  - BLOOD PRESSURE DECREASED [None]
  - CARDIOACTIVE DRUG LEVEL INCREASED [None]
  - DISORIENTATION [None]
  - DRUG INTERACTION [None]
  - DYSPHASIA [None]
  - ERYTHEMA MULTIFORME [None]
  - HYPERGLYCAEMIA [None]
  - HYPOGLYCAEMIA [None]
  - INSOMNIA [None]
  - LIVER DISORDER [None]
  - LOSS OF CONSCIOUSNESS [None]
  - MALAISE [None]
  - MUSCLE TWITCHING [None]
  - NAUSEA [None]
  - OVERDOSE [None]
  - PLEURAL EFFUSION [None]
  - PNEUMONIA PRIMARY ATYPICAL [None]
  - PULMONARY CONGESTION [None]
  - ULCER HAEMORRHAGE [None]
